FAERS Safety Report 9913389 (Version 1)
Quarter: 2014Q1

REPORT INFORMATION
  Report Type: Spontaneous
  Country: US (occurrence: None)
  Receive Date: 20140218
  Receipt Date: 20140218
  Transmission Date: 20141002
  Serious: Yes (Hospitalization, Disabling)
  Sender: FDA-Public Use
  Company Number: None

PATIENT
  Age: 16 Year
  Sex: Female
  Weight: 159 kg

DRUGS (15)
  1. BORTEZOMIB [Suspect]
     Indication: ACUTE LYMPHOCYTIC LEUKAEMIA RECURRENT
     Route: 042
     Dates: start: 20140121
  2. BORTEZOMIB [Suspect]
     Route: 042
     Dates: start: 20140121
  3. METHOTREXATE [Concomitant]
  4. INTRA-OMMAYA [Concomitant]
  5. ALLOPURINOL [Concomitant]
  6. LANTUS [Concomitant]
  7. INSULIN ASPART [Concomitant]
  8. HYDROCORTISONE [Concomitant]
  9. PREDNISONE [Concomitant]
  10. BACTRIM [Concomitant]
  11. CALCIUM CARBONATE [Concomitant]
  12. CETERIZINE [Concomitant]
  13. DRONABINOL [Concomitant]
  14. GRANISETRON [Concomitant]
  15. LEVETIRACETAM [Concomitant]

REACTIONS (1)
  - Vocal cord paralysis [None]
